FAERS Safety Report 17338068 (Version 1)
Quarter: 2020Q1

REPORT INFORMATION
  Report Type: Spontaneous
  Country: FR (occurrence: FR)
  Receive Date: 20200129
  Receipt Date: 20200129
  Transmission Date: 20200409
  Serious: Yes (Other)
  Sender: FDA-Public Use
  Company Number: FR-TEVA-2020-FR-1164479

PATIENT
  Age: 69 Year
  Sex: Female
  Weight: 63 kg

DRUGS (4)
  1. PALBOCICLIB [Suspect]
     Active Substance: PALBOCICLIB
     Indication: PRODUCT USED FOR UNKNOWN INDICATION
     Dosage: 125 MG, CYCLIC
     Route: 048
     Dates: start: 20190920
  2. PALBOCICLIB [Suspect]
     Active Substance: PALBOCICLIB
     Dosage: 125 MG FROM DAY 1 TO DAY 21
     Dates: start: 20191029
  3. FULVESTRANT. [Suspect]
     Active Substance: FULVESTRANT
     Indication: PRODUCT USED FOR UNKNOWN INDICATION
     Dosage: 500 MG, CYCLIC (250 MG AT 1 INJECTION IM IN EACH MUSCLE OF THE THIGH: 500 MG AT DAY 1, DAY 15 AND D)
     Route: 030
     Dates: start: 20190920
  4. FULVESTRANT. [Suspect]
     Active Substance: FULVESTRANT
     Dosage: 250 MG, TWICE EVERY 28 DAYS
     Dates: start: 20191128

REACTIONS (9)
  - Rash [Unknown]
  - Fatigue [Unknown]
  - Gastrooesophageal reflux disease [Unknown]
  - Mucosal inflammation [Unknown]
  - Anaemia [Not Recovered/Not Resolved]
  - Pain [Unknown]
  - Hypertension [Unknown]
  - Diarrhoea [Unknown]
  - Thrombocytopenia [Unknown]

NARRATIVE: CASE EVENT DATE: 20191003
